FAERS Safety Report 10310495 (Version 1)
Quarter: 2014Q3

REPORT INFORMATION
  Report Type: Spontaneous
  Country: US (occurrence: None)
  Receive Date: 20140715
  Receipt Date: 20140715
  Transmission Date: 20150326
  Serious: Yes (Hospitalization)
  Sender: FDA-Public Use
  Company Number: UCM201406-000121

PATIENT
  Age: 63 Year
  Sex: Female

DRUGS (5)
  1. GLYBURIDE (GLYBURIDE) (GLYBURIDE) [Suspect]
     Active Substance: GLYBURIDE
  2. LISINOPRIL (LISINOPRIL) (LISINOPRIL) [Suspect]
     Active Substance: LISINOPRIL
  3. METFORMIN [Suspect]
     Active Substance: METFORMIN HYDROCHLORIDE
  4. TRIAMTERENE. [Suspect]
     Active Substance: TRIAMTERENE
  5. HYDROCHLOROTHIAZIDE (HYDROCHLOROTHIAZIDE) (HYDROCHLOROTHIAZIDE) [Suspect]
     Active Substance: HYDROCHLOROTHIAZIDE

REACTIONS (5)
  - Hypoglycaemia [None]
  - Renal failure [None]
  - Decreased appetite [None]
  - Hypophagia [None]
  - Hemiparesis [None]
